FAERS Safety Report 24354478 (Version 2)
Quarter: 2025Q1

REPORT INFORMATION
  Report Type: Spontaneous
  Country: RU (occurrence: RU)
  Receive Date: 20240923
  Receipt Date: 20250127
  Transmission Date: 20250408
  Serious: Yes (Hospitalization)
  Sender: MYLAN
  Company Number: RU-MYLANLABS-2024M1085797

PATIENT
  Age: 85 Year
  Sex: Female

DRUGS (8)
  1. EPLERENONE [Suspect]
     Active Substance: EPLERENONE
     Indication: Hypertension
     Dosage: 25 MILLIGRAM, QD, RECEIVED IN THE MORNING
     Route: 065
  2. BISOPROLOL [Suspect]
     Active Substance: BISOPROLOL
     Indication: Hypertension
     Dosage: 2.5 MILLIGRAM, QD, RECEIVED IN THE MORNING
     Route: 065
  3. AZILSARTAN MEDOXOMIL\CHLORTHALIDONE [Suspect]
     Active Substance: AZILSARTAN MEDOXOMIL\CHLORTHALIDONE
     Indication: Hypertension
     Dosage: 40 MILLIGRAM, QD (RECEIVED IN THE MORNING)
     Route: 065
  4. LERCANIDIPINE HYDROCHLORIDE [Suspect]
     Active Substance: LERCANIDIPINE HYDROCHLORIDE
     Indication: Hypertension
     Dosage: 10 MILLIGRAM, PM (RECEIVED IN THE EVENING)
     Route: 065
  5. CHLORTHALIDONE [Concomitant]
     Active Substance: CHLORTHALIDONE
     Route: 065
  6. CLOPIDOGREL [Concomitant]
     Active Substance: CLOPIDOGREL BISULFATE
     Dosage: 75 MILLIGRAM, QD
     Route: 065
  7. ROSUVASTATIN [Concomitant]
     Active Substance: ROSUVASTATIN
     Dosage: 10 MILLIGRAM, QD
     Route: 065
  8. METFORMIN [Concomitant]
     Active Substance: METFORMIN HYDROCHLORIDE
     Dosage: 500 MILLIGRAM, AM (RECEIVED IN THE MORNING)
     Route: 065

REACTIONS (8)
  - BRASH syndrome [Recovering/Resolving]
  - Mitral valve incompetence [Recovering/Resolving]
  - Aortic valve incompetence [Recovering/Resolving]
  - Supraventricular extrasystoles [Recovering/Resolving]
  - Ventricular extrasystoles [Recovering/Resolving]
  - Cardiac failure chronic [Recovering/Resolving]
  - Left ventricular hypertrophy [Recovering/Resolving]
  - Syncope [Recovering/Resolving]

NARRATIVE: CASE EVENT DATE: 20230814
